FAERS Safety Report 24935145 (Version 1)
Quarter: 2025Q1

REPORT INFORMATION
  Report Type: Spontaneous
  Country: US (occurrence: US)
  Receive Date: 20250206
  Receipt Date: 20250206
  Transmission Date: 20250409
  Serious: No
  Sender: AMGEN
  Company Number: US-AMGEN-USASP2025019481

PATIENT
  Age: 49 Year
  Sex: Female

DRUGS (8)
  1. CARFILZOMIB [Suspect]
     Active Substance: CARFILZOMIB
     Indication: Plasma cell myeloma
     Route: 040
  2. CARFILZOMIB [Suspect]
     Active Substance: CARFILZOMIB
     Route: 040
  3. VELCADE [Suspect]
     Active Substance: BORTEZOMIB
     Indication: Plasma cell myeloma
     Route: 065
  4. DEXAMETHASONE [Suspect]
     Active Substance: DEXAMETHASONE
     Indication: Plasma cell myeloma
     Route: 040
  5. POMALIDOMIDE [Suspect]
     Active Substance: POMALIDOMIDE
     Indication: Plasma cell myeloma
     Route: 065
  6. CYCLOPHOSPHAMIDE [Suspect]
     Active Substance: CYCLOPHOSPHAMIDE
     Indication: Plasma cell myeloma
     Route: 065
  7. FILANESIB [Suspect]
     Active Substance: FILANESIB
     Indication: Plasma cell myeloma
     Route: 065
  8. PELAREOREP [Suspect]
     Active Substance: PELAREOREP
     Indication: Plasma cell myeloma
     Route: 065

REACTIONS (1)
  - Therapy non-responder [Unknown]
